FAERS Safety Report 10238625 (Version 2)
Quarter: 2014Q2

REPORT INFORMATION
  Report Type: Spontaneous
  Country: FR (occurrence: FR)
  Receive Date: 20140616
  Receipt Date: 20140616
  Transmission Date: 20141212
  Serious: Yes (Hospitalization)
  Sender: FDA-Public Use
  Company Number: FR-TEVA-482599ISR

PATIENT
  Sex: Male

DRUGS (7)
  1. AMOXICILLINE TEVA 1 G [Suspect]
     Indication: ORAL INFECTION
     Dosage: 3 TABLET DAILY;
     Route: 048
     Dates: start: 201405, end: 201405
  2. AMOXICILLINE TEVA 1 G [Suspect]
     Route: 048
     Dates: start: 201401
  3. AMOXICILLINE TEVA 1 G [Suspect]
     Dosage: 3 TABLET DAILY;
     Route: 048
     Dates: start: 201405, end: 201405
  4. AMOXICILLIN [Suspect]
     Dates: start: 20060602, end: 20060609
  5. AMOXICILLIN [Suspect]
     Dates: start: 200811
  6. AMOXICILLIN [Suspect]
     Dates: start: 20111206
  7. AMOXICILLIN [Suspect]
     Dates: start: 201401

REACTIONS (3)
  - Sciatica [Recovered/Resolved]
  - Back pain [Recovered/Resolved]
  - Pyrexia [Recovered/Resolved]
